FAERS Safety Report 7252573-1 (Version None)
Quarter: 2011Q1

REPORT INFORMATION
  Report Type: 
  Country: None (occurrence: None)
  Receive Date: 20110129
  Receipt Date: 20100408
  Transmission Date: 20110831
  Serious: Yes (Other)
  Sender: FDA-Public Use
  Company Number: US-ABBOTT-10P-163-0637424-00

PATIENT
  Sex: Female
  Weight: 86.26 kg

DRUGS (8)
  1. HUMIRA [Suspect]
     Dosage: 2ND DOSE, 80MG 2 WEEKS AFTER LOADING DOSE
     Route: 050
     Dates: start: 20100101, end: 20100101
  2. DILAUDID [Suspect]
     Indication: PAIN
     Dosage: TWO SYRINGES
     Route: 042
     Dates: start: 20100407, end: 20100407
  3. HUMIRA [Suspect]
     Indication: COLITIS ULCERATIVE
     Dosage: DAY 1-80MG (2 PENS) ON WEDNESDAY; DAY 2-80MG (2 PENS) ON THURSDAY
     Route: 050
  4. HUMIRA [Suspect]
     Dosage: 80MG (2 PENS) 2 WEEKS AFTER LOADING DOSE.
     Route: 050
     Dates: start: 20100101, end: 20100101
  5. ANTIBIOTICS [Concomitant]
     Indication: DIARRHOEA
  6. ANTIBIOTICS [Concomitant]
  7. HUMIRA [Suspect]
     Route: 050
  8. LIALDA [Concomitant]
     Indication: COLITIS ULCERATIVE

REACTIONS (5)
  - DIARRHOEA [None]
  - PAIN [None]
  - ABDOMINAL PAIN UPPER [None]
  - DEHYDRATION [None]
  - PRURITUS [None]
